FAERS Safety Report 14958923 (Version 1)
Quarter: 2018Q2

REPORT INFORMATION
  Report Type: Spontaneous
  Country: US (occurrence: US)
  Receive Date: 20180531
  Receipt Date: 20180531
  Transmission Date: 20180711
  Serious: Yes (Other)
  Sender: FDA-Public Use
  Company Number: US-OTSUKA-2018_013144

PATIENT
  Sex: Male

DRUGS (1)
  1. ABILIFY [Suspect]
     Active Substance: ARIPIPRAZOLE
     Indication: PRODUCT USED FOR UNKNOWN INDICATION
     Dosage: UNK
     Route: 065

REACTIONS (9)
  - Abnormal behaviour [Unknown]
  - Restlessness [Unknown]
  - Homicide [Unknown]
  - Agitation [Unknown]
  - Irritability [Unknown]
  - Akathisia [Unknown]
  - Personality disorder [Unknown]
  - Anger [Unknown]
  - Aggression [Unknown]
